FAERS Safety Report 5644738-7 (Version None)
Quarter: 2008Q1

REPORT INFORMATION
  Report Type: 
  Country: None (occurrence: None)
  Receive Date: 20080229
  Receipt Date: 20070706
  Transmission Date: 20080703
  Serious: No
  Sender: FDA-Public Use
  Company Number: A0662203A

PATIENT
  Age: 55 Year
  Sex: Female

DRUGS (5)
  1. VALTREX [Suspect]
     Indication: ANTIVIRAL PROPHYLAXIS
     Dosage: 500MG PER DAY
     Route: 048
  2. DYAZIDE [Concomitant]
  3. FOSAMAX [Concomitant]
  4. SYNTHROID [Concomitant]
  5. PRAVACHOL [Concomitant]

REACTIONS (2)
  - DRUG INEFFECTIVE [None]
  - TREATMENT NONCOMPLIANCE [None]
